FAERS Safety Report 12656417 (Version 1)
Quarter: 2016Q3

REPORT INFORMATION
  Report Type: Spontaneous
  Country: US (occurrence: US)
  Receive Date: 20160816
  Receipt Date: 20160816
  Transmission Date: 20161109
  Serious: No
  Sender: FDA-Public Use
  Company Number: US-PERRIGO-15US009695

PATIENT
  Age: 53 Year
  Sex: Female
  Weight: 86.17 kg

DRUGS (6)
  1. LORATADINE. [Suspect]
     Active Substance: LORATADINE
     Indication: SNEEZING
  2. LORATADINE. [Suspect]
     Active Substance: LORATADINE
     Indication: EYE PRURITUS
     Dosage: 10 MG, QD
     Route: 048
     Dates: start: 20150902
  3. LORATADINE. [Suspect]
     Active Substance: LORATADINE
     Indication: RHINORRHOEA
  4. PRIMIDONE. [Concomitant]
     Active Substance: PRIMIDONE
     Indication: SEIZURE
     Dosage: 1000 MG
     Route: 065
     Dates: start: 1985
  5. LORATADINE. [Suspect]
     Active Substance: LORATADINE
     Indication: SEASONAL ALLERGY
  6. DILANTIN [Concomitant]
     Active Substance: PHENYTOIN
     Indication: SEIZURE
     Dosage: 500 MG
     Route: 065
     Dates: start: 1985

REACTIONS (1)
  - Drug effect decreased [Unknown]

NARRATIVE: CASE EVENT DATE: 20150915
